FAERS Safety Report 6016390-2 (Version None)
Quarter: 2008Q4

REPORT INFORMATION
  Report Type: 
  Country: None (occurrence: None)
  Receive Date: 20081222
  Receipt Date: 20081211
  Transmission Date: 20090506
  Serious: No
  Sender: FDA-Public Use
  Company Number: FR-JNJFOC-20081106381

PATIENT
  Sex: Male
  Weight: 75 kg

DRUGS (3)
  1. RISPERDAL CONSTA [Suspect]
     Indication: SCHIZOPHRENIA
     Route: 030
  2. TERCIAN [Concomitant]
     Indication: ANXIETY
     Route: 065
  3. PRAZEPAM [Concomitant]
     Indication: ANXIETY
     Route: 048

REACTIONS (1)
  - LEUKOPENIA [None]
